FAERS Safety Report 11783344 (Version 1)
Quarter: 2015Q4

REPORT INFORMATION
  Report Type: Spontaneous
  Country: CZ (occurrence: CZ)
  Receive Date: 20151127
  Receipt Date: 20151127
  Transmission Date: 20160305
  Serious: Yes (Other)
  Sender: FDA-Public Use
  Company Number: CZ-AMGEN-CZESP2015125156

PATIENT
  Age: 41 Year
  Sex: Male
  Weight: 90 kg

DRUGS (7)
  1. VENTOLIN [Concomitant]
     Active Substance: ALBUTEROL SULFATE
     Dosage: ON REQUEST
     Dates: start: 2015
  2. DOXYBENE [Concomitant]
     Dosage: DAILY DOSE UNSPECIFIED
     Dates: start: 2015
  3. SINGULAIR [Concomitant]
     Active Substance: MONTELUKAST SODIUM
     Dosage: 10 MG, DAILY
     Dates: start: 2015
  4. PROCORALAN [Suspect]
     Active Substance: IVABRADINE
     Indication: CARDIAC FAILURE
  5. TRITACE [Concomitant]
     Active Substance: RAMIPRIL
     Dosage: 2.5 MG, DAILY
     Dates: start: 20151104
  6. PROCORALAN [Suspect]
     Active Substance: IVABRADINE
     Indication: HEART RATE INCREASED
     Dosage: 5 MG, QD
     Route: 048
     Dates: start: 20151111, end: 20151112
  7. ZODAC [Concomitant]
     Dosage: 10 MG, DAILY
     Dates: start: 2015

REACTIONS (4)
  - Chills [Recovered/Resolved]
  - Visual impairment [Recovered/Resolved]
  - Hyperhidrosis [Recovered/Resolved]
  - Vision blurred [Recovered/Resolved]

NARRATIVE: CASE EVENT DATE: 20151111
